FAERS Safety Report 8073234-5 (Version None)
Quarter: 2012Q1

REPORT INFORMATION
  Report Type: 
  Country: None (occurrence: None)
  Receive Date: 20120123
  Receipt Date: 20120123
  Transmission Date: 20120608
  Serious: No
  Sender: FDA-Public Use
  Company Number: None

PATIENT
  Sex: Female

DRUGS (1)
  1. AVONEX [Suspect]
     Dosage: 30 MCG/0.5ML IM INJECT 30MCG (0.5ML) INTRAMUSCULARLY ONCE A WEEK AS DIRECTED BY YOUR PHYSICIAN.
     Route: 030
     Dates: start: 20110411

REACTIONS (6)
  - PERIPHERAL COLDNESS [None]
  - VERTIGO [None]
  - MUSCULOSKELETAL STIFFNESS [None]
  - HYPOAESTHESIA [None]
  - INFLUENZA LIKE ILLNESS [None]
  - HEADACHE [None]
